FAERS Safety Report 17622890 (Version 1)
Quarter: 2020Q2

REPORT INFORMATION
  Report Type: Spontaneous
  Country: US (occurrence: US)
  Receive Date: 20200403
  Receipt Date: 20200403
  Transmission Date: 20200713
  Serious: No
  Sender: FDA-Public Use
  Company Number: US-PFIZER INC-2020135606

PATIENT
  Sex: Female

DRUGS (2)
  1. CRANBERRY. [Interacting]
     Active Substance: CRANBERRY
     Indication: URINARY TRACT INFECTION
  2. PROTONIX [Suspect]
     Active Substance: PANTOPRAZOLE SODIUM
     Indication: GASTROOESOPHAGEAL REFLUX DISEASE
     Dosage: UNK

REACTIONS (2)
  - Drug ineffective [Unknown]
  - Drug interaction [Unknown]
